FAERS Safety Report 11936578 (Version 1)
Quarter: 2016Q1

REPORT INFORMATION
  Report Type: Spontaneous
  Country: FR (occurrence: FR)
  Receive Date: 20160121
  Receipt Date: 20160121
  Transmission Date: 20160526
  Serious: Yes (Hospitalization)
  Sender: FDA-Public Use
  Company Number: FR-PFIZER INC-2016022614

PATIENT
  Age: 64 Year
  Sex: Male

DRUGS (18)
  1. KARDEGIC [Concomitant]
     Active Substance: ASPIRIN LYSINE
     Dosage: 1 DF, DAILY
  2. DIFFU K [Concomitant]
     Active Substance: POTASSIUM CHLORIDE
  3. LOVENOX [Concomitant]
     Active Substance: ENOXAPARIN SODIUM
     Dosage: 4000 IU, DAILY
  4. PAROXETINE [Concomitant]
     Active Substance: PAROXETINE\PAROXETINE HYDROCHLORIDE
     Dosage: 20 MG, 1X/DAY
  5. MEROPENEM. [Concomitant]
     Active Substance: MEROPENEM
     Indication: LUNG DISORDER
  6. MEROPENEM. [Concomitant]
     Active Substance: MEROPENEM
     Indication: MENINGITIS PNEUMOCOCCAL
  7. AMIKACIN [Concomitant]
     Active Substance: AMIKACIN
     Indication: MENINGITIS PNEUMOCOCCAL
     Dosage: 2 G, SINGLE
     Route: 042
     Dates: start: 20151115, end: 20151115
  8. TAZOCILLINE [Suspect]
     Active Substance: PIPERACILLIN SODIUM\TAZOBACTAM SODIUM
     Indication: LUNG DISORDER
     Dosage: 4 G, 3X/DAY
     Dates: start: 20151115, end: 20151118
  9. TIENAM [Suspect]
     Active Substance: CILASTATIN SODIUM\IMIPENEM
     Indication: MENINGITIS PNEUMOCOCCAL
  10. SKENAN [Concomitant]
     Active Substance: MORPHINE SULFATE
     Dosage: 30 MG, 2X/DAY
  11. TAZOCILLINE [Suspect]
     Active Substance: PIPERACILLIN SODIUM\TAZOBACTAM SODIUM
     Indication: MENINGITIS PNEUMOCOCCAL
  12. TIENAM [Suspect]
     Active Substance: CILASTATIN SODIUM\IMIPENEM
     Indication: LUNG DISORDER
     Dosage: UNK
     Dates: start: 20151103, end: 20151105
  13. PERINDOPRIL [Concomitant]
     Active Substance: PERINDOPRIL
     Dosage: 4 MG, 1X/DAY
  14. ACTISKENAN [Concomitant]
     Active Substance: MORPHINE SULFATE
     Dosage: 10 MG, 4X/DAY
     Route: 048
  15. AMOXICILLIN. [Concomitant]
     Active Substance: AMOXICILLIN
     Dosage: UNK
  16. PLAVIX [Concomitant]
     Active Substance: CLOPIDOGREL BISULFATE
     Dosage: 75 MG, DAILY
  17. ATORVASTATIN [Concomitant]
     Active Substance: ATORVASTATIN
     Dosage: 8 MG, DAILY
  18. AMIKACIN [Concomitant]
     Active Substance: AMIKACIN
     Indication: LUNG DISORDER
     Dosage: UNK
     Dates: start: 201511

REACTIONS (4)
  - Aggression [Recovered/Resolved]
  - Confusional state [Recovered/Resolved]
  - Encephalitis [Recovering/Resolving]
  - Aggression [Recovered/Resolved]

NARRATIVE: CASE EVENT DATE: 20151104
